FAERS Safety Report 23567308 (Version 1)
Quarter: 2024Q1

REPORT INFORMATION
  Report Type: Spontaneous
  Country: CH (occurrence: CH)
  Receive Date: 20240226
  Receipt Date: 20240226
  Transmission Date: 20240410
  Serious: Yes (Other)
  Sender: FDA-Public Use
  Company Number: None

PATIENT
  Age: 50 Year
  Sex: Female
  Weight: 72.7 kg

DRUGS (15)
  1. ENHERTU [Suspect]
     Active Substance: FAM-TRASTUZUMAB DERUXTECAN-NXKI
     Indication: Breast cancer female
     Dosage: UNK
     Route: 065
     Dates: start: 20230920
  2. KEFZOL [Suspect]
     Active Substance: CEFAZOLIN SODIUM
     Indication: Staphylococcal bacteraemia
     Dosage: 2 G
     Route: 041
     Dates: start: 20240109, end: 20240129
  3. CEFEPIME [Suspect]
     Active Substance: CEFEPIME HYDROCHLORIDE
     Indication: Staphylococcal bacteraemia
     Dosage: UNK
     Route: 065
     Dates: start: 20240108, end: 20240109
  4. ELIQUIS [Suspect]
     Active Substance: APIXABAN
     Indication: Product used for unknown indication
     Dosage: 5 MG
     Route: 048
     Dates: start: 20240109, end: 20240129
  5. BISOPROLOL FUMARATE [Suspect]
     Active Substance: BISOPROLOL FUMARATE
     Indication: Product used for unknown indication
     Dosage: 2.5 MG, QD
     Route: 048
     Dates: start: 20240109
  6. PANTOPRAZOLE SODIUM [Suspect]
     Active Substance: PANTOPRAZOLE SODIUM
     Indication: Product used for unknown indication
     Dosage: 20 MG, QD
     Route: 048
     Dates: start: 20240109
  7. NALOXONE HYDROCHLORIDE\OXYCODONE HYDROCHLORIDE [Suspect]
     Active Substance: NALOXONE HYDROCHLORIDE\OXYCODONE HYDROCHLORIDE
     Indication: Product used for unknown indication
     Dosage: 1 DF (5/2.5 MG) (08:00H AND 20:00H)
     Route: 048
     Dates: start: 20240109, end: 20240130
  8. DAFALGAN [Suspect]
     Active Substance: ACETAMINOPHEN
     Indication: Pain
     Dosage: 500 MG (NOT DOCUMENTED ANYMORE AFTER 28.01.2024 ; AS NECESSARY)
     Route: 048
     Dates: start: 20240109
  9. ZOLEDRONIC ACID [Concomitant]
     Active Substance: ZOLEDRONIC ACID
     Indication: Osteoporosis prophylaxis
     Dosage: UNK UNK, ONCE EVERY 3 MO
     Route: 042
     Dates: start: 20220208
  10. MAGNESIUM ASPARTATE HYDROCHLORIDE [Concomitant]
     Active Substance: MAGNESIUM ASPARTATE HYDROCHLORIDE
     Indication: Product used for unknown indication
     Dosage: 5 MMOL, QD
     Route: 048
     Dates: start: 20240109
  11. PHOSCAP [Concomitant]
     Indication: Product used for unknown indication
     Dosage: 3 MMOL (EACH 8 HOUR)
     Route: 048
     Dates: start: 20240109
  12. LAXIPEG [Concomitant]
     Indication: Product used for unknown indication
     Dosage: 10 G, QD
     Route: 048
     Dates: start: 20240109, end: 20240127
  13. LAXIPEG [Concomitant]
     Dosage: 10 G (AS NECESSARY)
     Route: 048
     Dates: start: 20240128
  14. PREGABALIN [Concomitant]
     Active Substance: PREGABALIN
     Indication: Product used for unknown indication
     Dosage: 75 MG, QD
     Route: 048
     Dates: start: 20240109, end: 20240127
  15. DENTOHEXIN [Concomitant]
     Indication: Product used for unknown indication
     Dosage: UNK (NOT DOCUMENTED ANYMORE AFTER 28.01.2024)
     Route: 002
     Dates: start: 20240109

REACTIONS (3)
  - Liver disorder [Not Recovered/Not Resolved]
  - Metastases to meninges [Unknown]
  - Staphylococcal bacteraemia [Recovered/Resolved]

NARRATIVE: CASE EVENT DATE: 20240101
